FAERS Safety Report 7324027-5 (Version None)
Quarter: 2011Q1

REPORT INFORMATION
  Report Type: 
  Country: None (occurrence: None)
  Receive Date: 20110217
  Receipt Date: 20110202
  Transmission Date: 20110831
  Serious: Yes (Other)
  Sender: FDA-Public Use
  Company Number: 025372

PATIENT
  Sex: Female
  Weight: 62.6 kg

DRUGS (5)
  1. ATENOLOL [Concomitant]
  2. CIMZIA [Suspect]
     Indication: CROHN'S DISEASE
     Dosage: 400 MG 1X2 WEEKS, SUBCUTANEOUS
     Route: 058
     Dates: start: 20100101
  3. LEVETIRACETAM [Concomitant]
  4. LISINOPRIL AND HYDROCHLOROTHIAZIDE [Concomitant]
  5. TYLENOL [Concomitant]

REACTIONS (3)
  - PSORIASIS [None]
  - LICHEN PLANUS [None]
  - CONDITION AGGRAVATED [None]
